FAERS Safety Report 8054371-8 (Version None)
Quarter: 2012Q1

REPORT INFORMATION
  Report Type: 
  Country: None (occurrence: None)
  Receive Date: 20120118
  Receipt Date: 20120116
  Transmission Date: 20120608
  Serious: Yes (Other)
  Sender: FDA-Public Use
  Company Number: PHHY2012AR003999

PATIENT
  Sex: Female

DRUGS (1)
  1. ONBREZ [Suspect]
     Dates: start: 20110801, end: 20110901

REACTIONS (2)
  - CARDIAC DISORDER [None]
  - TACHYCARDIA [None]
